FAERS Safety Report 16409612 (Version 1)
Quarter: 2019Q2

REPORT INFORMATION
  Report Type: Spontaneous
  Country: US (occurrence: US)
  Receive Date: 20190610
  Receipt Date: 20190610
  Transmission Date: 20190711
  Serious: No
  Sender: FDA-Public Use
  Company Number: US-ITALFARMACO SPA-2067984

PATIENT
  Age: 64 Year
  Sex: Female

DRUGS (6)
  1. RILUZOLE. [Concomitant]
     Active Substance: RILUZOLE
  2. TIGLUTIK [Suspect]
     Active Substance: RILUZOLE
     Indication: AMYOTROPHIC LATERAL SCLEROSIS
     Route: 048
     Dates: start: 20181115
  3. PRAVASTATIN. [Concomitant]
     Active Substance: PRAVASTATIN
  4. DRONABINOL. [Concomitant]
     Active Substance: DRONABINOL
  5. HYDROCHLOROTHIAZIDE. [Concomitant]
     Active Substance: HYDROCHLOROTHIAZIDE
  6. MEXILETINE HYDROCHLORIDE. [Concomitant]
     Active Substance: MEXILETINE HYDROCHLORIDE

REACTIONS (2)
  - Hypoaesthesia oral [Unknown]
  - Pharyngeal hypoaesthesia [Unknown]
